FAERS Safety Report 9775140 (Version 3)
Quarter: 2014Q2

REPORT INFORMATION
  Report Type: Spontaneous
  Country: US (occurrence: US)
  Receive Date: 20131220
  Receipt Date: 20140625
  Transmission Date: 20141212
  Serious: No
  Sender: FDA-Public Use
  Company Number: US-PFIZER INC-2013361401

PATIENT
  Age: 43 Year
  Sex: Female
  Weight: 56.69 kg

DRUGS (2)
  1. ADVIL [Suspect]
     Indication: DYSMENORRHOEA
     Dosage: UNK
     Route: 048
  2. ADVIL [Suspect]
     Dosage: 400 MG, UNK
     Route: 048
     Dates: end: 20131215

REACTIONS (4)
  - Poor quality drug administered [Unknown]
  - Dyspepsia [Unknown]
  - Abdominal discomfort [Unknown]
  - Product odour abnormal [Unknown]
